FAERS Safety Report 8912679 (Version 9)
Quarter: 2013Q3

REPORT INFORMATION
  Report Type: Spontaneous
  Country: US (occurrence: US)
  Receive Date: 20121116
  Receipt Date: 20130821
  Transmission Date: 20140515
  Serious: Yes (Other)
  Sender: FDA-Public Use
  Company Number: US-JNJFOC-20121102235

PATIENT
  Sex: Male
  Weight: 99.79 kg

DRUGS (18)
  1. INVEGA SUSTENNA [Suspect]
     Indication: DELUSION
     Route: 030
     Dates: start: 201209, end: 201209
  2. INVEGA SUSTENNA [Suspect]
     Indication: DELUSION
     Route: 030
     Dates: start: 20121006, end: 20121006
  3. INVEGA SUSTENNA [Suspect]
     Indication: DELUSION
     Route: 030
     Dates: start: 201210, end: 201210
  4. INVEGA SUSTENNA [Suspect]
     Indication: SCHIZOPHRENIA
     Route: 030
     Dates: start: 201210, end: 201210
  5. INVEGA SUSTENNA [Suspect]
     Indication: SCHIZOPHRENIA
     Route: 030
     Dates: start: 201209, end: 201209
  6. INVEGA SUSTENNA [Suspect]
     Indication: SCHIZOPHRENIA
     Route: 030
     Dates: start: 20121006, end: 20121006
  7. RISPERIDONE [Suspect]
     Indication: DELUSION
     Route: 048
     Dates: start: 20121001, end: 20121012
  8. RISPERIDONE [Suspect]
     Indication: SCHIZOPHRENIA
     Route: 048
     Dates: start: 20121001, end: 20121012
  9. INVEGA [Suspect]
     Indication: DELUSION
     Route: 048
     Dates: start: 2013, end: 2013
  10. INVEGA [Suspect]
     Indication: DELUSION
     Route: 048
     Dates: start: 2013
  11. INVEGA [Suspect]
     Indication: DELUSION
     Route: 048
     Dates: start: 20121012, end: 2013
  12. INVEGA [Suspect]
     Indication: SCHIZOPHRENIA
     Route: 048
     Dates: start: 2013, end: 2013
  13. INVEGA [Suspect]
     Indication: SCHIZOPHRENIA
     Route: 048
     Dates: start: 2013
  14. INVEGA [Suspect]
     Indication: SCHIZOPHRENIA
     Route: 048
     Dates: start: 20121012, end: 2013
  15. CLONAZEPAM [Suspect]
     Indication: SCHIZOPHRENIA
     Route: 048
     Dates: start: 20121006
  16. TRAZODONE [Suspect]
     Indication: SCHIZOPHRENIA
     Route: 048
     Dates: start: 20120906
  17. HALOPERIDOL [Suspect]
     Indication: SCHIZOPHRENIA
     Route: 048
     Dates: end: 2013
  18. HALOPERIDOL [Suspect]
     Indication: SCHIZOPHRENIA
     Route: 048
     Dates: start: 20121006

REACTIONS (13)
  - Psychotic disorder [Recovering/Resolving]
  - Speech disorder [Recovering/Resolving]
  - Gait disturbance [Not Recovered/Not Resolved]
  - Eye disorder [Not Recovered/Not Resolved]
  - Drooling [Recovering/Resolving]
  - Drug ineffective [Recovered/Resolved]
  - Muscle rigidity [Recovering/Resolving]
  - Lacrimation increased [Recovering/Resolving]
  - Musculoskeletal stiffness [Recovering/Resolving]
  - Eating disorder symptom [Recovering/Resolving]
  - Muscular weakness [Not Recovered/Not Resolved]
  - Drug dose omission [Recovered/Resolved]
  - Refusal of treatment by patient [Recovered/Resolved]
